FAERS Safety Report 4901576-8 (Version None)
Quarter: 2006Q1

REPORT INFORMATION
  Report Type: 
  Country: None (occurrence: None)
  Receive Date: 20060206
  Receipt Date: 20050418
  Transmission Date: 20060701
  Serious: No
  Sender: FDA-Public Use
  Company Number: US-BRISTOL-MYERS SQUIBB COMPANY-12938106

PATIENT
  Age: 25 Year
  Sex: Male
  Weight: 97 kg

DRUGS (5)
  1. TAXOL [Suspect]
     Indication: GERM CELL CANCER
     Route: 042
     Dates: start: 20040504, end: 20040504
  2. GEMZAR [Concomitant]
     Indication: GERM CELL CANCER
     Route: 042
     Dates: start: 20040512, end: 20040512
  3. DECADRON PHOSPHATE [Concomitant]
     Indication: PREMEDICATION
     Route: 042
     Dates: start: 20040512, end: 20040512
  4. ANZEMET [Concomitant]
     Indication: PREMEDICATION
     Route: 042
     Dates: start: 20040512, end: 20040512
  5. BENADRYL [Concomitant]
     Indication: PREMEDICATION
     Route: 040
     Dates: start: 20040512, end: 20040512

REACTIONS (1)
  - ACNE [None]
